FAERS Safety Report 9521383 (Version 1)
Quarter: 2013Q3

REPORT INFORMATION
  Report Type: Spontaneous
  Country: IT (occurrence: IT)
  Receive Date: 20130913
  Receipt Date: 20130913
  Transmission Date: 20140515
  Serious: Yes (Hospitalization)
  Sender: FDA-Public Use
  Company Number: IT-JNJFOC-20130904376

PATIENT
  Age: 40 Year
  Sex: Female

DRUGS (1)
  1. TOPAMAX [Suspect]
     Indication: HEADACHE
     Route: 048
     Dates: start: 20130620, end: 20130630

REACTIONS (3)
  - Mental disorder [Unknown]
  - Suicidal ideation [Unknown]
  - Headache [Unknown]
